FAERS Safety Report 14370971 (Version 1)
Quarter: 2018Q1

REPORT INFORMATION
  Report Type: Spontaneous
  Country: US (occurrence: US)
  Receive Date: 20180110
  Receipt Date: 20180110
  Transmission Date: 20180509
  Serious: Yes (Other)
  Sender: FDA-Public Use
  Company Number: US-009507513-1801USA001014

PATIENT
  Sex: Female

DRUGS (1)
  1. NEXPLANON [Suspect]
     Active Substance: ETONOGESTREL
     Indication: CONTRACEPTION
     Dosage: 1 ROD/3 YEARS
     Route: 059
     Dates: start: 20171023, end: 20171129

REACTIONS (9)
  - Tenderness [Recovered/Resolved]
  - Complication associated with device [Recovered/Resolved]
  - General anaesthesia [Recovered/Resolved]
  - Axillary pain [Recovered/Resolved]
  - Device dislocation [Recovered/Resolved]
  - Surgery [Recovered/Resolved]
  - Weight abnormal [Recovered/Resolved]
  - Body mass index abnormal [Recovered/Resolved]
  - Complication of device removal [Recovered/Resolved]

NARRATIVE: CASE EVENT DATE: 2017
